FAERS Safety Report 20796697 (Version 1)
Quarter: 2022Q2

REPORT INFORMATION
  Report Type: Spontaneous
  Country: US (occurrence: US)
  Receive Date: 20220506
  Receipt Date: 20220506
  Transmission Date: 20220721
  Serious: No
  Sender: FDA-Public Use
  Company Number: US-PFIZER INC-202101139327

PATIENT
  Age: 63 Year
  Sex: Female

DRUGS (2)
  1. MEDROL [Suspect]
     Active Substance: METHYLPREDNISOLONE
     Indication: Sinusitis
     Dosage: UNK
     Dates: start: 202107
  2. ZITHROMAX [Concomitant]
     Active Substance: AZITHROMYCIN DIHYDRATE
     Indication: Sinusitis
     Dosage: UNK
     Dates: start: 202107

REACTIONS (4)
  - Off label use [Unknown]
  - Illness [Unknown]
  - Chest pain [Unknown]
  - Rash [Unknown]

NARRATIVE: CASE EVENT DATE: 20210701
